FAERS Safety Report 13070480 (Version 1)
Quarter: 2016Q4

REPORT INFORMATION
  Report Type: Spontaneous
  Country: US (occurrence: US)
  Receive Date: 20161229
  Receipt Date: 20161229
  Transmission Date: 20170207
  Serious: Yes (Hospitalization, Other)
  Sender: FDA-Public Use
  Company Number: US-ALVOGEN-2016-ALVOGEN-087444

PATIENT
  Age: 71 Year
  Sex: Male

DRUGS (5)
  1. PREDNISOLONE. [Interacting]
     Active Substance: PREDNISOLONE
     Indication: IMMUNOSUPPRESSION
  2. VORICONAZOLE. [Suspect]
     Active Substance: VORICONAZOLE
     Indication: SCEDOSPORIUM INFECTION
     Route: 048
  3. TACROLIMUS. [Interacting]
     Active Substance: TACROLIMUS
     Indication: IMMUNOSUPPRESSION
  4. MICAFUNGIN [Suspect]
     Active Substance: MICAFUNGIN
     Indication: SCEDOSPORIUM INFECTION
     Route: 048
  5. MYCOPHENOLATE MOFETIL. [Concomitant]
     Active Substance: MYCOPHENOLATE MOFETIL
     Indication: IMMUNOSUPPRESSION

REACTIONS (4)
  - Periostitis [Not Recovered/Not Resolved]
  - Failure to thrive [Not Recovered/Not Resolved]
  - Drug interaction [Unknown]
  - Enthesopathy [Not Recovered/Not Resolved]
